FAERS Safety Report 9289444 (Version 1)
Quarter: 2013Q2

REPORT INFORMATION
  Report Type: Spontaneous
  Country: US (occurrence: US)
  Receive Date: 20130514
  Receipt Date: 20130514
  Transmission Date: 20140414
  Serious: Yes (Hospitalization)
  Sender: FDA-Public Use
  Company Number: US-MYLANLABS-2013S1009726

PATIENT
  Age: 37 Year
  Sex: Female

DRUGS (2)
  1. TOPOTECAN [Suspect]
     Indication: OVARIAN LOW MALIGNANT POTENTIAL TUMOUR
     Dosage: 2.96 MG/M2 INFUSIONS ON D1, 8, 15 OF 28-D CYCLE FOR 4 CYCLES; INCREASED TO 3.45 MG/M2 FOR CYCLE 5
     Route: 050
  2. TOPOTECAN [Suspect]
     Indication: OVARIAN LOW MALIGNANT POTENTIAL TUMOUR
     Dosage: 3.45 MG/M2 INFUSIONS ON D1, 15 OF 28-D CYCLE (CYCLE 5)
     Route: 050

REACTIONS (1)
  - Acute febrile neutrophilic dermatosis [Recovering/Resolving]
